FAERS Safety Report 8101125-X (Version None)
Quarter: 2012Q1

REPORT INFORMATION
  Report Type: 
  Country: None (occurrence: None)
  Receive Date: 20120129
  Receipt Date: 20110908
  Transmission Date: 20120608
  Serious: No
  Sender: FDA-Public Use
  Company Number: US-ABBOTT-11P-163-0852839-00

PATIENT
  Age: 64 Year
  Sex: Female

DRUGS (4)
  1. PRAVASTATIN [Concomitant]
     Indication: BLOOD CHOLESTEROL INCREASED
     Dosage: 20 MG - 1/2 TABLET EVERY TWO DAYS
     Dates: start: 20090101
  2. HUMIRA [Suspect]
     Indication: RHEUMATOID ARTHRITIS
  3. LISINOPRIL AND HYDROCHLOROTHIAZIDE [Concomitant]
     Indication: BLOOD PRESSURE INCREASED
     Dosage: ONE 1/2 PILL DAILY
  4. LEVOTHYROXINE SODIUM [Concomitant]
     Indication: HYPOTHYROIDISM
     Dosage: DAILY
     Route: 048

REACTIONS (8)
  - PAIN [None]
  - ARTHRALGIA [None]
  - ASTHENIA [None]
  - OROPHARYNGEAL PAIN [None]
  - VIRAL INFECTION [None]
  - FATIGUE [None]
  - INFLUENZA LIKE ILLNESS [None]
  - BLOOD CHOLESTEROL INCREASED [None]
